FAERS Safety Report 23660953 (Version 1)
Quarter: 2024Q1

REPORT INFORMATION
  Report Type: Spontaneous
  Country: US (occurrence: US)
  Receive Date: 20240322
  Receipt Date: 20240322
  Transmission Date: 20240409
  Serious: No
  Sender: FDA-Public Use
  Company Number: US-SA-SAC20240318001430

PATIENT
  Sex: Female

DRUGS (8)
  1. DUPIXENT [Suspect]
     Active Substance: DUPILUMAB
     Indication: Asthma
     Dosage: 300 MG, QOW
     Route: 058
  2. DULOXETINE [Concomitant]
     Active Substance: DULOXETINE
  3. FAMOTIDINE [Concomitant]
     Active Substance: FAMOTIDINE
  4. GABAPENTIN [Concomitant]
     Active Substance: GABAPENTIN
  5. LOVASTATIN [Concomitant]
     Active Substance: LOVASTATIN
  6. TELMISARTAN [Concomitant]
     Active Substance: TELMISARTAN
  7. VITAMIN C [Concomitant]
     Active Substance: ASCORBIC ACID
  8. VITAMIN D NOS [Concomitant]
     Active Substance: VITAMIN D NOS

REACTIONS (1)
  - Arthralgia [Not Recovered/Not Resolved]
